FAERS Safety Report 4698315-5 (Version None)
Quarter: 2005Q2

REPORT INFORMATION
  Report Type: 
  Country: None (occurrence: None)
  Receive Date: 20050623
  Receipt Date: 20050420
  Transmission Date: 20051028
  Serious: Yes (Death, Hospitalization)
  Sender: FDA-Public Use
  Company Number: FR-ROCHE-402605

PATIENT
  Age: 71 Year
  Sex: Female
  Weight: 56 kg

DRUGS (3)
  1. PEGASYS [Suspect]
     Indication: HEPATITIS C
     Dosage: FORMULATION REPORTED AS INJECTABLE SOLUTION.
     Route: 058
     Dates: start: 20050214
  2. COPEGUS [Suspect]
     Indication: HEPATITIS C
     Route: 048
  3. UNSPECIFIED DRUG [Concomitant]
     Dosage: DRUG NAME REPORTED AS ENDING BY THE SUFFIX - ^SARTAN^.

REACTIONS (2)
  - ACUTE RESPIRATORY FAILURE [None]
  - INTERSTITIAL LUNG DISEASE [None]
